FAERS Safety Report 13176547 (Version 6)
Quarter: 2019Q3

REPORT INFORMATION
  Report Type: Report from Study
  Country: None (occurrence: BR)
  Receive Date: 20170201
  Receipt Date: 20190925
  Transmission Date: 20191004
  Serious: Yes (Hospitalization, Other)
  Sender: FDA-Public Use
  Company Number: BR-ABBVIE-17P-020-1857505-00

PATIENT
  Age: 33 Year
  Sex: Female
  Weight: 45 kg

DRUGS (12)
  1. HUMIRA [Suspect]
     Active Substance: ADALIMUMAB
     Dosage: MAINTENANCE DOSE
     Route: 058
     Dates: start: 2009
  2. CARBAMAZEPINE. [Concomitant]
     Active Substance: CARBAMAZEPINE
     Indication: SEIZURE PROPHYLAXIS
     Route: 048
  3. DIPYRONE [Concomitant]
     Active Substance: DIPYRONE
     Indication: PAIN
     Route: 048
     Dates: start: 2006
  4. CLINDAMYCIN HYDROCHLORIDE. [Concomitant]
     Active Substance: CLINDAMYCIN HYDROCHLORIDE
     Indication: ABSCESS LIMB
  5. HUMIRA [Suspect]
     Active Substance: ADALIMUMAB
     Indication: PSORIASIS
     Dosage: LOADING DOSE (WEEK 2)
     Route: 058
     Dates: start: 200910, end: 200910
  6. PHENOBARBITAL. [Concomitant]
     Active Substance: PHENOBARBITAL
     Indication: EPILEPSY
  7. TRAMAL [Concomitant]
     Active Substance: TRAMADOL
     Indication: PAIN
     Route: 048
     Dates: start: 2006
  8. PHENYTOIN. [Concomitant]
     Active Substance: PHENYTOIN
     Indication: EPILEPSY
     Route: 048
  9. PHENOBARBITAL. [Concomitant]
     Active Substance: PHENOBARBITAL
     Indication: SEIZURE PROPHYLAXIS
     Route: 048
  10. CARBAMAZEPINE. [Concomitant]
     Active Substance: CARBAMAZEPINE
     Indication: EPILEPSY
  11. HUMIRA [Suspect]
     Active Substance: ADALIMUMAB
     Indication: CROHN^S DISEASE
     Dosage: LOADING DOSE (WEEK ZERO)
     Route: 058
     Dates: start: 20091002, end: 20091002
  12. PREDNISONE. [Concomitant]
     Active Substance: PREDNISONE
     Indication: ABSCESS LIMB

REACTIONS (26)
  - Rectal lesion [Unknown]
  - Vaginal lesion [Unknown]
  - Dermatitis [Recovering/Resolving]
  - Autonomic nervous system imbalance [Not Recovered/Not Resolved]
  - Wound haemorrhage [Unknown]
  - Purulence [Unknown]
  - Ear injury [Unknown]
  - Wound secretion [Unknown]
  - Hospitalisation [Unknown]
  - Skin discolouration [Recovering/Resolving]
  - Ear infection [Recovering/Resolving]
  - Rectal fissure [Unknown]
  - Therapeutic product effect incomplete [Unknown]
  - Metastatic cutaneous Crohn^s disease [Recovering/Resolving]
  - Malaise [Not Recovered/Not Resolved]
  - Skin haemorrhage [Recovered/Resolved]
  - Intertrigo [Recovered/Resolved]
  - Psoriasis [Recovered/Resolved with Sequelae]
  - Leishmaniasis [Not Recovered/Not Resolved]
  - Skin fissures [Recovered/Resolved]
  - Dry skin [Unknown]
  - Wound [Unknown]
  - Weight increased [Not Recovered/Not Resolved]
  - Limb injury [Unknown]
  - Depression [Not Recovered/Not Resolved]
  - Adverse event [Unknown]

NARRATIVE: CASE EVENT DATE: 2011
